FAERS Safety Report 6503713-0 (Version None)
Quarter: 2009Q4

REPORT INFORMATION
  Report Type: 
  Country: None (occurrence: None)
  Receive Date: 20091217
  Receipt Date: 20091209
  Transmission Date: 20100525
  Serious: Yes (Hospitalization)
  Sender: FDA-Public Use
  Company Number: PHHO2009JP15420

PATIENT
  Sex: Male

DRUGS (18)
  1. VALSARTAN [Suspect]
     Indication: HYPERTENSION
     Dosage: 160 MG
     Route: 048
     Dates: start: 20081126, end: 20090629
  2. ROTIGOTINE [Suspect]
     Indication: PARKINSON'S DISEASE
     Dosage: 4.5 MG
     Route: 062
     Dates: start: 20090127
  3. ROTIGOTINE [Suspect]
     Dosage: 9 MG / DAY
     Route: 062
     Dates: start: 20090203
  4. ROTIGOTINE [Suspect]
     Dosage: 13.5 MG / DAY
     Route: 062
     Dates: start: 20090210
  5. ROTIGOTINE [Suspect]
     Dosage: 18 MG / DAY
     Route: 062
     Dates: start: 20090216
  6. ROTIGOTINE [Suspect]
     Dosage: 13.5 MG / DAY
     Route: 062
     Dates: start: 20090223
  7. ROTIGOTINE [Suspect]
     Dosage: 18 MG / DAY
     Route: 062
     Dates: start: 20091006
  8. SYMMETREL [Suspect]
     Indication: PARKINSON'S DISEASE
     Dosage: 200 MG
     Route: 048
     Dates: start: 20090106, end: 20090628
  9. SYMMETREL [Suspect]
     Dosage: 100 MG
     Route: 048
     Dates: start: 20090629, end: 20090630
  10. AMARYL [Suspect]
     Indication: DIABETES MELLITUS
     Dosage: 2 MG
     Route: 048
     Dates: start: 20081203, end: 20090629
  11. ACTOS [Suspect]
     Indication: DIABETES MELLITUS
     Dosage: 15 MG
     Route: 048
     Dates: start: 20000712, end: 20090629
  12. CLOPIDOGREL SULFATE [Concomitant]
  13. FERROUS SODIUM CITRATE [Concomitant]
  14. BENIDIPINE HYDROCHLORIDE [Concomitant]
  15. MAGNESIUM OXIDE [Concomitant]
  16. BETAMETHASONE VALERATE [Concomitant]
  17. ETIZOLAM [Concomitant]
  18. CLONAZEPAM [Concomitant]

REACTIONS (8)
  - DEHYDRATION [None]
  - GAIT DISTURBANCE [None]
  - HYPOGLYCAEMIA [None]
  - LOSS OF CONSCIOUSNESS [None]
  - MYOCLONUS [None]
  - PALLOR [None]
  - RENAL IMPAIRMENT [None]
  - UNRESPONSIVE TO STIMULI [None]
